FAERS Safety Report 15448416 (Version 1)
Quarter: 2018Q3

REPORT INFORMATION
  Report Type: Spontaneous
  Country: US (occurrence: US)
  Receive Date: 20180929
  Receipt Date: 20180929
  Transmission Date: 20181010
  Serious: Yes (Hospitalization, Other)
  Sender: FDA-Public Use
  Company Number: US-ACCORD-072790

PATIENT
  Age: 82 Year
  Sex: Female
  Weight: 56.7 kg

DRUGS (4)
  1. MIRAPEX [Concomitant]
     Active Substance: PRAMIPEXOLE DIHYDROCHLORIDE
  2. HYDROCHLOROTHIAZIDE ACCORD [Suspect]
     Active Substance: HYDROCHLOROTHIAZIDE
     Indication: HYPERTENSION
     Route: 048
     Dates: start: 20180424, end: 20180502
  3. CLONIDINE. [Concomitant]
     Active Substance: CLONIDINE
     Route: 062
  4. SINEMET [Concomitant]
     Active Substance: CARBIDOPA\LEVODOPA
     Dosage: 25MG/100MG, QID

REACTIONS (6)
  - Loss of consciousness [Unknown]
  - Weight decreased [Recovering/Resolving]
  - Anal incontinence [Recovering/Resolving]
  - Gait inability [Recovering/Resolving]
  - Urinary incontinence [Recovering/Resolving]
  - Dysphagia [Recovering/Resolving]

NARRATIVE: CASE EVENT DATE: 20180426
